FAERS Safety Report 23843418 (Version 1)
Quarter: 2024Q2

REPORT INFORMATION
  Report Type: Report from Study
  Country: DE (occurrence: DE)
  Receive Date: 20240510
  Receipt Date: 20240510
  Transmission Date: 20240715
  Serious: Yes (Death, Hospitalization)
  Sender: FDA-Public Use
  Company Number: DE-BAYER-2024A066863

PATIENT
  Age: 87 Year
  Sex: Female

DRUGS (1)
  1. ADEMPAS [Suspect]
     Active Substance: RIOCIGUAT
     Indication: Pulmonary hypertension
     Dosage: 2.5 MG
     Dates: end: 20240505

REACTIONS (5)
  - Pneumonitis [None]
  - Pneumonia [None]
  - Death [Fatal]
  - Dyspnoea [None]
  - Aphasia [None]

NARRATIVE: CASE EVENT DATE: 20240425
